FAERS Safety Report 9396752 (Version 1)
Quarter: 2013Q3

REPORT INFORMATION
  Report Type: Spontaneous
  Country: NL (occurrence: NL)
  Receive Date: 20130712
  Receipt Date: 20130712
  Transmission Date: 20140515
  Serious: Yes (Other)
  Sender: FDA-Public Use
  Company Number: NL-ROCHE-1247569

PATIENT
  Sex: Female

DRUGS (2)
  1. RITUXIMAB [Suspect]
     Indication: MONOCLONAL GAMMOPATHY
     Route: 065
  2. RITUXIMAB [Suspect]
     Indication: DEMYELINATING POLYNEUROPATHY

REACTIONS (1)
  - Demyelinating polyneuropathy [Recovering/Resolving]
